FAERS Safety Report 23185297 (Version 3)
Quarter: 2023Q4

REPORT INFORMATION
  Report Type: Report from Study
  Country: JP (occurrence: JP)
  Receive Date: 20231115
  Receipt Date: 20231117
  Transmission Date: 20240110
  Serious: Yes (Life-Threatening, Hospitalization, Disabling, Other)
  Sender: FDA-Public Use
  Company Number: JP-ALXN-A202108101

PATIENT
  Age: 0 Year
  Sex: Female
  Weight: 7 kg

DRUGS (4)
  1. STRENSIQ [Suspect]
     Active Substance: ASFOTASE ALFA
     Indication: Hypophosphatasia
     Dosage: 2 MG/KG, TIW
     Route: 058
     Dates: start: 20200127
  2. STRENSIQ [Suspect]
     Active Substance: ASFOTASE ALFA
     Dosage: 2 MILLIGRAM/KILOGRAM, TIW
     Route: 065
     Dates: start: 20200702, end: 20200814
  3. STRENSIQ [Suspect]
     Active Substance: ASFOTASE ALFA
     Dosage: 1 MILLIGRAM/KILOGRAM, TIW
     Route: 065
     Dates: start: 20200814
  4. BUDESONIDE [Concomitant]
     Active Substance: BUDESONIDE
     Indication: Hypophosphatasia
     Dosage: 0.25 MILLIGRAM, BID
     Route: 055
     Dates: start: 20200702

REACTIONS (9)
  - Pneumonia respiratory syncytial viral [Recovered/Resolved]
  - Dumping syndrome [Recovering/Resolving]
  - Gastrooesophageal reflux disease [Recovered/Resolved with Sequelae]
  - Femur fracture [Recovering/Resolving]
  - Complication associated with device [Unknown]
  - Nephrolithiasis [Unknown]
  - Tibia fracture [Recovering/Resolving]
  - Fall [Unknown]
  - Blood alkaline phosphatase decreased [Recovered/Resolved]

NARRATIVE: CASE EVENT DATE: 20200828
